FAERS Safety Report 11278577 (Version 1)
Quarter: 2015Q3

REPORT INFORMATION
  Report Type: Spontaneous
  Country: US (occurrence: None)
  Receive Date: 20150715
  Receipt Date: 20150715
  Transmission Date: 20151125
  Serious: No
  Sender: FDA-Public Use
  Company Number: DL2015-0528

PATIENT
  Age: 31 Year
  Sex: Female

DRUGS (4)
  1. AZITHROMYCIN [Concomitant]
     Active Substance: AZITHROMYCIN ANHYDROUS
  2. FLAGYL [Concomitant]
     Active Substance: METRONIDAZOLE\METRONIDAZOLE HYDROCHLORIDE
  3. MIFEPRISTONE [Suspect]
     Active Substance: MIFEPRISTONE
     Indication: ABORTION INDUCED
     Route: 048
     Dates: start: 20150409
  4. MISOPROSTOL. [Suspect]
     Active Substance: MISOPROSTOL
     Route: 002
     Dates: start: 20150410

REACTIONS (1)
  - Abortion incomplete [None]

NARRATIVE: CASE EVENT DATE: 20150424
